FAERS Safety Report 6937049-0 (Version None)
Quarter: 2010Q3

REPORT INFORMATION
  Report Type: 
  Country: None (occurrence: None)
  Receive Date: 20100823
  Receipt Date: 20100810
  Transmission Date: 20110219
  Serious: Yes (Other)
  Sender: FDA-Public Use
  Company Number: PHHY2010ZA52887

PATIENT
  Age: 63 Year
  Sex: Female

DRUGS (2)
  1. ZOMETA [Suspect]
     Indication: METASTASES TO BONE
     Dosage: UNK
  2. HORMONES NOS [Concomitant]

REACTIONS (2)
  - BONE INFARCTION [None]
  - BONE LESION [None]
